FAERS Safety Report 8442952-9 (Version None)
Quarter: 2012Q2

REPORT INFORMATION
  Report Type: 
  Country: None (occurrence: None)
  Receive Date: 20120615
  Receipt Date: 20120608
  Transmission Date: 20120825
  Serious: Yes (Hospitalization, Other)
  Sender: FDA-Public Use
  Company Number: US-PFIZER INC-2010034445

PATIENT
  Sex: Female
  Weight: 67 kg

DRUGS (2)
  1. TEGRETOL [Concomitant]
     Indication: CONVULSION
     Dosage: UNK
     Dates: start: 20020801, end: 20020801
  2. DILANTIN-125 [Suspect]
     Indication: CONVULSION
     Dosage: 400 MG, 1X/DAY
     Dates: start: 20020702, end: 20020701

REACTIONS (1)
  - STEVENS-JOHNSON SYNDROME [None]
